FAERS Safety Report 19006646 (Version 1)
Quarter: 2021Q1

REPORT INFORMATION
  Report Type: Spontaneous
  Country: US (occurrence: US)
  Receive Date: 20210311
  Receipt Date: 20210311
  Transmission Date: 20210420
  Serious: Yes (Hospitalization)
  Sender: FDA-Public Use
  Company Number: None

PATIENT
  Sex: Female

DRUGS (23)
  1. CLONAZEPAM. [Concomitant]
     Active Substance: CLONAZEPAM
  2. HYDROXYZ PAM [Concomitant]
     Active Substance: HYDROXYZINE PAMOATE
  3. METOPROL SUC ER [Concomitant]
     Active Substance: METOPROLOL SUCCINATE
  4. BUPREN/NALOX [Concomitant]
     Active Substance: BUPRENORPHINE\NALOXONE
  5. ETODOLAC. [Concomitant]
     Active Substance: ETODOLAC
  6. TRAMADOL HCL [Concomitant]
     Active Substance: TRAMADOL HYDROCHLORIDE
  7. BUT/APAP/CAF [Concomitant]
  8. CLOBETASOL [Concomitant]
     Active Substance: CLOBETASOL
  9. DEXILANT [Concomitant]
     Active Substance: DEXLANSOPRAZOLE
  10. ADDERALL XR [Concomitant]
     Active Substance: AMPHETAMINE ASPARTATE\AMPHETAMINE SULFATE\DEXTROAMPHETAMINE SACCHARATE\DEXTROAMPHETAMINE SULFATE
  11. AMOXICILLIN. [Concomitant]
     Active Substance: AMOXICILLIN
  12. TALTZ [Suspect]
     Active Substance: IXEKIZUMAB
     Indication: PSORIASIS
     Route: 058
     Dates: start: 20200123
  13. FLUTICASONE. [Concomitant]
     Active Substance: FLUTICASONE
  14. DEXTROAMPHET SACCHARAT, AMPHET ASPARTATE, DEXTROAMPHET SULFATE AND AMPHET SULFAT [Concomitant]
     Active Substance: AMPHETAMINE ASPARTATE\AMPHETAMINE SULFATE\DEXTROAMPHETAMINE SACCHARATE\DEXTROAMPHETAMINE SULFATE
  15. ARIPIPRAZOLE. [Concomitant]
     Active Substance: ARIPIPRAZOLE
  16. HYDROXYZ HCL [Concomitant]
     Active Substance: HYDROXYZINE HYDROCHLORIDE
  17. LISINOPRIL. [Concomitant]
     Active Substance: LISINOPRIL
  18. SERTRALINE [Concomitant]
     Active Substance: SERTRALINE HYDROCHLORIDE
  19. BACLOFEN. [Concomitant]
     Active Substance: BACLOFEN
  20. FERROUS SULF [Concomitant]
     Active Substance: FERROUS SULFATE
  21. KLONOPIN [Concomitant]
     Active Substance: CLONAZEPAM
  22. OFLOXACIN. [Concomitant]
     Active Substance: OFLOXACIN
  23. SUBOXONE [Concomitant]
     Active Substance: BUPRENORPHINE HYDROCHLORIDE\NALOXONE HYDROCHLORIDE

REACTIONS (2)
  - Pneumonia [None]
  - Therapy interrupted [None]
